FAERS Safety Report 13779961 (Version 3)
Quarter: 2018Q1

REPORT INFORMATION
  Report Type: Spontaneous
  Country: US (occurrence: US)
  Receive Date: 20170723
  Receipt Date: 20180327
  Transmission Date: 20180508
  Serious: Yes (Other)
  Sender: FDA-Public Use
  Company Number: US-009507513-1707USA006742

PATIENT
  Sex: Male

DRUGS (6)
  1. TAMSULOSIN HYDROCHLORIDE. [Concomitant]
     Active Substance: TAMSULOSIN HYDROCHLORIDE
  2. ZEPATIER [Suspect]
     Active Substance: ELBASVIR\GRAZOPREVIR
     Dosage: TAKE 1 TABLET EVERY DAY, TOTAL DAILY DOSE: 50-100 MG
     Route: 048
     Dates: start: 2017, end: 201709
  3. ZEPATIER [Suspect]
     Active Substance: ELBASVIR\GRAZOPREVIR
     Indication: HEPATITIS C
     Dosage: TAKE 1 TABLET EVERY DAY, TOTAL DAILY DOSE: 50-100 MG
     Route: 048
     Dates: start: 201706, end: 2017
  4. DOXAZOSIN MESYLATE. [Concomitant]
     Active Substance: DOXAZOSIN MESYLATE
  5. TRAZODONE HYDROCHLORIDE. [Concomitant]
     Active Substance: TRAZODONE HYDROCHLORIDE
  6. PRINIVIL [Concomitant]
     Active Substance: LISINOPRIL

REACTIONS (4)
  - Headache [Unknown]
  - Urticaria [Not Recovered/Not Resolved]
  - Adverse event [Unknown]
  - Pruritus [Unknown]

NARRATIVE: CASE EVENT DATE: 2017
